FAERS Safety Report 10890664 (Version 4)
Quarter: 2015Q2

REPORT INFORMATION
  Report Type: Spontaneous
  Country: CO (occurrence: CO)
  Receive Date: 20150305
  Receipt Date: 20150601
  Transmission Date: 20150821
  Serious: Yes (Other)
  Sender: FDA-Public Use
  Company Number: CO-JNJFOC-20150217921

PATIENT
  Age: 49 Year
  Sex: Female
  Weight: 76 kg

DRUGS (4)
  1. SIMPONI [Suspect]
     Active Substance: GOLIMUMAB
     Indication: RHEUMATOID ARTHRITIS
     Route: 058
     Dates: start: 20150124
  2. PREDNISOLONE. [Suspect]
     Active Substance: PREDNISOLONE
     Indication: PRODUCT USED FOR UNKNOWN INDICATION
     Route: 048
  3. LOSARTAN [Concomitant]
     Active Substance: LOSARTAN
     Indication: HYPERTENSION
     Route: 065
  4. METHOTREXATE [Concomitant]
     Active Substance: METHOTREXATE
     Route: 048
     Dates: start: 200509

REACTIONS (4)
  - Joint swelling [Recovering/Resolving]
  - Subcutaneous abscess [Not Recovered/Not Resolved]
  - Urinary tract infection [Not Recovered/Not Resolved]
  - Chikungunya virus infection [Unknown]

NARRATIVE: CASE EVENT DATE: 20150217
